FAERS Safety Report 12102407 (Version 7)
Quarter: 2016Q3

REPORT INFORMATION
  Report Type: Report from Study
  Country: FR (occurrence: FR)
  Receive Date: 20160222
  Receipt Date: 20160727
  Transmission Date: 20161109
  Serious: Yes (Death, Life-Threatening, Hospitalization, Other)
  Sender: FDA-Public Use
  Company Number: FR-GILEAD-2016-0198486

PATIENT
  Age: 56 Year
  Sex: Female
  Weight: 50 kg

DRUGS (3)
  1. HEPARIN [Concomitant]
     Active Substance: HEPARIN SODIUM
     Indication: VENOUS THROMBOSIS
     Dosage: UNK
     Dates: start: 20160124, end: 20160205
  2. EFFERALGAN CODEINE [Concomitant]
     Active Substance: ACETAMINOPHEN\CODEINE PHOSPHATE
     Indication: PAIN
     Dosage: UNK
     Dates: start: 20160124, end: 20160221
  3. LEDIPASVIR/SOFOSBUVIR [Suspect]
     Active Substance: LEDIPASVIR\SOFOSBUVIR
     Indication: HEPATITIS C
     Dosage: 1 DF, QD
     Route: 048
     Dates: start: 20151123, end: 20160125

REACTIONS (12)
  - Cryoglobulinaemia [Unknown]
  - Glomerulonephritis membranoproliferative [Unknown]
  - Left ventricular failure [Fatal]
  - Pulmonary arterial hypertension [Fatal]
  - Renal tubular disorder [Unknown]
  - Cerebral haemorrhage [Unknown]
  - Multiple organ dysfunction syndrome [Fatal]
  - Respiratory distress [Fatal]
  - Cardiac failure [Fatal]
  - Acute kidney injury [Unknown]
  - Heparin-induced thrombocytopenia [Recovering/Resolving]
  - Acute respiratory failure [Unknown]

NARRATIVE: CASE EVENT DATE: 201601
